FAERS Safety Report 18239954 (Version 4)
Quarter: 2021Q3

REPORT INFORMATION
  Report Type: Report from Study
  Country: JP (occurrence: JP)
  Receive Date: 20200908
  Receipt Date: 20210714
  Transmission Date: 20211014
  Serious: Yes (Death, Hospitalization, Other)
  Sender: FDA-Public Use
  Company Number: JP-AMGEN-JPNCT2019119829

PATIENT
  Age: 69 Year
  Sex: Female

DRUGS (32)
  1. DARBEPOETIN ALFA [Suspect]
     Active Substance: DARBEPOETIN ALFA
     Dosage: 240 MICROGRAM, Q6WK
     Route: 058
     Dates: start: 20190618, end: 20190910
  2. DARBEPOETIN ALFA [Suspect]
     Active Substance: DARBEPOETIN ALFA
     Dosage: 240 MICROGRAM
     Route: 058
     Dates: start: 20201221
  3. OXYCONTIN [Concomitant]
     Active Substance: OXYCODONE HYDROCHLORIDE
     Dosage: UNK
     Route: 048
     Dates: end: 20210108
  4. DARBEPOETIN ALFA [Suspect]
     Active Substance: DARBEPOETIN ALFA
     Dosage: 240 MICROGRAM
     Route: 058
     Dates: start: 20190111, end: 20190111
  5. DARBEPOETIN ALFA [Suspect]
     Active Substance: DARBEPOETIN ALFA
     Dosage: 240 MICROGRAM
     Route: 058
     Dates: start: 20190308, end: 20190308
  6. CODEINE PHOSPHATE [Concomitant]
     Active Substance: CODEINE PHOSPHATE
     Dosage: UNK
     Route: 048
     Dates: end: 20180823
  7. SUGLAT [Concomitant]
     Active Substance: IPRAGLIFLOZIN L-PROLINE
     Indication: DIABETES MELLITUS
     Dosage: UNK
     Route: 048
     Dates: end: 20201130
  8. GLAKAY [Concomitant]
     Active Substance: MENATETRENONE
     Indication: MYELODYSPLASTIC SYNDROME
     Dosage: 45 MILLIGRAM
     Route: 048
     Dates: start: 20200302, end: 20201130
  9. DARBEPOETIN ALFA [Suspect]
     Active Substance: DARBEPOETIN ALFA
     Dosage: 240 MICROGRAM
     Route: 058
     Dates: start: 20190412, end: 20190412
  10. DARBEPOETIN ALFA [Suspect]
     Active Substance: DARBEPOETIN ALFA
     Dosage: 240 MICROGRAM, Q4WK
     Route: 058
     Dates: start: 20191210, end: 20200428
  11. DARBEPOETIN ALFA [Suspect]
     Active Substance: DARBEPOETIN ALFA
     Dosage: 240 MICROGRAM, Q3WK
     Route: 058
     Dates: start: 20180713, end: 20180824
  12. DARBEPOETIN ALFA [Suspect]
     Active Substance: DARBEPOETIN ALFA
     Dosage: 240 MICROGRAM
     Route: 058
     Dates: start: 20190513, end: 20190513
  13. DARBEPOETIN ALFA [Suspect]
     Active Substance: DARBEPOETIN ALFA
     Dosage: 240 MICROGRAM
     Route: 058
     Dates: start: 20200522, end: 20200522
  14. HUSTAZOL [CLOPERASTINE FENDIZOATE] [Concomitant]
     Active Substance: CLOPERASTINE FENDIZOATE
     Dosage: UNK
     Route: 048
     Dates: end: 20180823
  15. JANUVIA [Concomitant]
     Active Substance: SITAGLIPTIN PHOSPHATE
     Indication: DIABETES MELLITUS
     Dosage: UNK
     Route: 048
     Dates: end: 20201130
  16. PRIMOBOLAN [METENOLONE ACETATE] [Concomitant]
     Active Substance: METHENOLONE ACETATE
     Indication: MYELODYSPLASTIC SYNDROME
     Dosage: 20 MILLIGRAM
     Route: 048
     Dates: start: 20200302, end: 20201130
  17. NAIXAN [NAPROXEN] [Concomitant]
     Active Substance: NAPROXEN
     Dosage: UNK
     Route: 048
     Dates: end: 20210108
  18. MAGMITT [Concomitant]
     Active Substance: MAGNESIUM OXIDE
     Indication: CONSTIPATION
     Dosage: UNK
     Route: 048
  19. TAZOPIPE [Concomitant]
     Active Substance: PIPERACILLIN SODIUM\TAZOBACTAM SODIUM
     Dosage: 13.5 GRAM
     Route: 065
     Dates: start: 20190821, end: 20190903
  20. DARBEPOETIN ALFA [Suspect]
     Active Substance: DARBEPOETIN ALFA
     Indication: MYELODYSPLASTIC SYNDROME
     Dosage: 240 MICROGRAM, Q2WK
     Route: 058
     Dates: start: 20180601, end: 20180629
  21. DARBEPOETIN ALFA [Suspect]
     Active Substance: DARBEPOETIN ALFA
     Dosage: 240 MICROGRAM
     Route: 058
     Dates: start: 20191015, end: 20191015
  22. DARBEPOETIN ALFA [Suspect]
     Active Substance: DARBEPOETIN ALFA
     Dosage: 240 MICROGRAM, Q4WK
     Route: 058
     Dates: start: 20200622, end: 20200721
  23. GLUBES [Concomitant]
     Active Substance: MITIGLINIDE CALCIUM HYDRATE\VOGLIBOSE
     Indication: DIABETES MELLITUS
     Dosage: UNK
     Route: 048
     Dates: end: 20181101
  24. MUCODYNE [Concomitant]
     Active Substance: CARBOCYSTEINE
     Dosage: UNK
     Route: 048
     Dates: end: 20180823
  25. VOGLIBOSE [Concomitant]
     Active Substance: VOGLIBOSE
     Indication: DIABETES MELLITUS
     Dosage: UNK
     Route: 048
     Dates: end: 20201130
  26. DARBEPOETIN ALFA [Suspect]
     Active Substance: DARBEPOETIN ALFA
     Dosage: 240 MICROGRAM
     Route: 058
     Dates: start: 20200817, end: 20200817
  27. DARBEPOETIN ALFA [Suspect]
     Active Substance: DARBEPOETIN ALFA
     Dosage: 240 MICROGRAM, Q2WK
     Route: 058
     Dates: start: 20201016, end: 20201030
  28. FUROSEMIDE. [Concomitant]
     Active Substance: FUROSEMIDE
     Indication: OEDEMA
     Dosage: UNK
     Route: 048
     Dates: end: 20180802
  29. OXINORM [OXYCODONE HYDROCHLORIDE] [Concomitant]
     Active Substance: OXYCODONE HYDROCHLORIDE
     Dosage: UNK
     Route: 048
     Dates: end: 20210108
  30. DARBEPOETIN ALFA [Suspect]
     Active Substance: DARBEPOETIN ALFA
     Dosage: 240 MICROGRAM
     Route: 058
     Dates: start: 20200807, end: 20200807
  31. EQUA [Concomitant]
     Active Substance: VILDAGLIPTIN
     Indication: DIABETES MELLITUS
     Dosage: UNK
     Route: 048
     Dates: end: 20180920
  32. MAGMITT [Concomitant]
     Active Substance: MAGNESIUM OXIDE
     Dosage: UNK
     Route: 048
     Dates: end: 20201130

REACTIONS (6)
  - Hepatic cancer recurrent [Recovering/Resolving]
  - Cholangitis acute [Recovering/Resolving]
  - Hepatic cancer [Recovering/Resolving]
  - Hepatocellular carcinoma [Fatal]
  - Cancer pain [Not Recovered/Not Resolved]
  - Bronchitis [Recovering/Resolving]

NARRATIVE: CASE EVENT DATE: 20180803
